FAERS Safety Report 6990580-4 (Version None)
Quarter: 2010Q3

REPORT INFORMATION
  Report Type: 
  Country: None (occurrence: None)
  Receive Date: 20100916
  Receipt Date: 20100716
  Transmission Date: 20110219
  Serious: Yes (Other)
  Sender: FDA-Public Use
  Company Number: US-PFIZER INC-2010042521

PATIENT
  Sex: Male
  Weight: 97.506 kg

DRUGS (9)
  1. LYRICA [Suspect]
     Indication: NEUROPATHY PERIPHERAL
     Dosage: 50 MG
     Route: 048
     Dates: start: 20100330, end: 20100716
  2. LYRICA [Suspect]
     Indication: DIABETIC NEUROPATHY
     Dosage: 100 MG, 3X/DAY
     Route: 048
     Dates: start: 20100101, end: 20100701
  3. LYRICA [Suspect]
     Indication: INTERVERTEBRAL DISC PROTRUSION
  4. TIAZAC [Concomitant]
     Indication: CARDIAC DISORDER
     Dosage: 240 MG, DAILY
  5. GLUCOVANCE [Concomitant]
     Indication: DIABETES MELLITUS
     Dosage: 2.5/500 MG, DAILY
  6. ACTOS [Concomitant]
     Indication: DIABETES MELLITUS
     Dosage: 30 MG, DAILY
  7. WARFARIN [Concomitant]
     Indication: ANTICOAGULANT THERAPY
     Dosage: UNK
  8. PACERONE [Concomitant]
     Indication: ATRIAL FIBRILLATION
     Dosage: 100 MG, DAILY
  9. BENICAR [Concomitant]
     Indication: CARDIAC DISORDER
     Dosage: 40/25 MG
     Route: 048

REACTIONS (3)
  - DYSSTASIA [None]
  - LETHARGY [None]
  - MOBILITY DECREASED [None]
